FAERS Safety Report 8232532-2 (Version None)
Quarter: 2012Q1

REPORT INFORMATION
  Report Type: 
  Country: None (occurrence: None)
  Receive Date: 20120323
  Receipt Date: 20120316
  Transmission Date: 20120608
  Serious: Yes (Hospitalization)
  Sender: FDA-Public Use
  Company Number: US-US-EMD SERONO, INC.-7114819

PATIENT
  Sex: Female
  Weight: 105 kg

DRUGS (12)
  1. PRILOSEC [Concomitant]
     Indication: ABDOMINAL DISCOMFORT
  2. LIDODERM [Concomitant]
     Indication: PAIN
  3. CALCIUM CARBONATE [Concomitant]
  4. VITAMIN E [Concomitant]
  5. DETROL LA [Concomitant]
     Indication: URINARY INCONTINENCE
  6. CYMBALTA [Concomitant]
     Indication: DEPRESSION
  7. REBIF [Suspect]
     Indication: MULTIPLE SCLEROSIS
     Route: 058
     Dates: start: 20120207
  8. REBIF [Suspect]
     Route: 058
     Dates: start: 20120302
  9. OXYCODONE HCL [Concomitant]
     Indication: PAIN
  10. GABAPENTIN [Concomitant]
  11. LAMOTRIGINE [Concomitant]
  12. DIAZEPAM [Concomitant]
     Indication: MUSCLE SPASMS

REACTIONS (1)
  - CONVULSION [None]
